FAERS Safety Report 14589633 (Version 1)
Quarter: 2018Q1

REPORT INFORMATION
  Report Type: Report from Study
  Country: US (occurrence: US)
  Receive Date: 20180302
  Receipt Date: 20180302
  Transmission Date: 20180509
  Serious: Yes (Other)
  Sender: FDA-Public Use
  Company Number: US-ARIAD PHARMACEUTICALS, INC-2017US009198

PATIENT
  Sex: Male

DRUGS (1)
  1. PONATINIB [Suspect]
     Active Substance: PONATINIB
     Indication: CHRONIC MYELOID LEUKAEMIA
     Dosage: 30 MG, QD
     Route: 048
     Dates: start: 20170731

REACTIONS (17)
  - Urinary incontinence [Unknown]
  - Splenic calcification [Unknown]
  - Anaemia [Not Recovered/Not Resolved]
  - Wheezing [Unknown]
  - Lymph node calcification [Unknown]
  - Spinal cord injury [Unknown]
  - Joint stiffness [Unknown]
  - Fatigue [Unknown]
  - Neutropenia [Unknown]
  - Lymphadenopathy [Unknown]
  - Lung infiltration [Unknown]
  - Bladder dilatation [Unknown]
  - Chronic obstructive pulmonary disease [Unknown]
  - Anal incontinence [Unknown]
  - Insomnia [Unknown]
  - Decreased appetite [Unknown]
  - Urinary tract infection [Unknown]
